FAERS Safety Report 4897032-6 (Version None)
Quarter: 2006Q1

REPORT INFORMATION
  Report Type: 
  Country: None (occurrence: None)
  Receive Date: 20060127
  Receipt Date: 20060117
  Transmission Date: 20060701
  Serious: Yes (Death, Life-Threatening)
  Sender: FDA-Public Use
  Company Number: 2006010649

PATIENT
  Age: 72 Year
  Sex: Female

DRUGS (6)
  1. CELEBREX [Suspect]
     Indication: ILL-DEFINED DISORDER
     Dosage: UNK (1 IN 1 D), UNKNOWN
     Route: 065
     Dates: start: 20040101
  2. ALPRESS (PRAZOSIN) [Suspect]
     Indication: ILL-DEFINED DISORDER
     Dosage: UNK (1 IN 1 D), UNKNOWN
     Route: 065
     Dates: start: 20020101, end: 20040101
  3. PIRACETAM (PIRACETAM) [Suspect]
     Indication: ILL-DEFINED DISORDER
     Dosage: UNK (3 IN 1 D), UNKNOWN
     Route: 065
     Dates: start: 20020101, end: 20040101
  4. LEVOTHROX (LEVOTHYROXINE SODIUM) [Suspect]
     Indication: ILL-DEFINED DISORDER
     Dosage: UNK (1 IN 1 D), UNKNOWN
     Route: 065
     Dates: start: 20040101
  5. VIOXX [Suspect]
     Indication: ILL-DEFINED DISORDER
     Dosage: UNK (1 IN 1 D), ORAL
     Route: 048
     Dates: start: 20020101, end: 20040101
  6. BISOPROLOL FUMARATE [Suspect]
     Indication: ILL-DEFINED DISORDER
     Dosage: 10 MG (10 MG, 1 IN 1 D), ORAL
     Route: 048
     Dates: start: 20020101, end: 20040101

REACTIONS (14)
  - ARTHRALGIA [None]
  - CEREBROVASCULAR ACCIDENT [None]
  - CHEST PAIN [None]
  - COMA [None]
  - CONDITION AGGRAVATED [None]
  - DEMENTIA [None]
  - DIABETES MELLITUS NON-INSULIN-DEPENDENT [None]
  - DYSPHAGIA [None]
  - HAEMATOMA [None]
  - HEMIPLEGIA [None]
  - HYPERTENSION [None]
  - MENTAL DISORDER [None]
  - MIGRAINE [None]
  - TINNITUS [None]
